FAERS Safety Report 4955851-1 (Version None)
Quarter: 2006Q1

REPORT INFORMATION
  Report Type: 
  Country: None (occurrence: None)
  Receive Date: 20060327
  Receipt Date: 20060327
  Transmission Date: 20060701
  Serious: Yes (Other)
  Sender: FDA-Public Use
  Company Number: None

PATIENT
  Sex: Female
  Weight: 629.1391 kg

DRUGS (1)
  1. ZONEGRAN [Suspect]
     Indication: BIPOLAR DISORDER
     Dosage: TWICE A DAY PO
     Route: 048
     Dates: start: 20050902, end: 20050919

REACTIONS (4)
  - BACK PAIN [None]
  - DIARRHOEA [None]
  - NEPHROLITHIASIS [None]
  - PAIN [None]
